FAERS Safety Report 25707427 (Version 1)
Quarter: 2025Q3

REPORT INFORMATION
  Report Type: Spontaneous
  Country: US (occurrence: US)
  Receive Date: 20250820
  Receipt Date: 20250820
  Transmission Date: 20251020
  Serious: No
  Sender: ASTELLAS
  Company Number: US-ASTELLAS-2024-AER-024715

PATIENT
  Age: 102 Year
  Sex: Male

DRUGS (4)
  1. XTANDI [Suspect]
     Active Substance: ENZALUTAMIDE
     Indication: Hormone-refractory prostate cancer
     Dosage: 4X 40 MG
     Route: 050
  2. FUROSEMIDE [Concomitant]
     Active Substance: FUROSEMIDE
     Indication: Product used for unknown indication
     Route: 065
  3. ASPIRIN [Concomitant]
     Active Substance: ASPIRIN
     Indication: Product used for unknown indication
     Route: 065
  4. DILTIAZEM [Concomitant]
     Active Substance: DILTIAZEM
     Indication: Product used for unknown indication
     Route: 065

REACTIONS (6)
  - Sensory disturbance [Unknown]
  - Abdominal discomfort [Unknown]
  - Hot flush [Unknown]
  - Cough [Unknown]
  - Fatigue [Unknown]
  - Product after taste [Unknown]
